FAERS Safety Report 6222440-0 (Version None)
Quarter: 2009Q2

REPORT INFORMATION
  Report Type: 
  Country: None (occurrence: None)
  Receive Date: 20090608
  Receipt Date: 20090424
  Transmission Date: 20091009
  Serious: Yes (Hospitalization)
  Sender: FDA-Public Use
  Company Number: ES-GENENTECH-284079

PATIENT
  Sex: Male

DRUGS (4)
  1. TRASTUZUMAB [Suspect]
     Indication: TRANSITIONAL CELL CARCINOMA
     Dosage: 4 MG/KG, SINGLE
     Route: 042
     Dates: start: 20060921
  2. TRASTUZUMAB [Suspect]
     Dosage: 2 MG/KG, 1/WEEK
     Route: 042
     Dates: start: 20060928, end: 20061109
  3. CISPLATIN [Suspect]
     Indication: TRANSITIONAL CELL CARCINOMA
     Dosage: 75 MG/M2, Q28D
     Route: 042
     Dates: start: 20060921, end: 20061109
  4. GEMCITABINE [Suspect]
     Indication: TRANSITIONAL CELL CARCINOMA
     Dosage: 1000 G/M2, UNK
     Route: 042
     Dates: start: 20060921, end: 20061109

REACTIONS (1)
  - ENDOCARDITIS BACTERIAL [None]
